FAERS Safety Report 8120456-0 (Version None)
Quarter: 2012Q1

REPORT INFORMATION
  Report Type: 
  Country: None (occurrence: None)
  Receive Date: 20120207
  Receipt Date: 20120201
  Transmission Date: 20120608
  Serious: Yes (Hospitalization)
  Sender: FDA-Public Use
  Company Number: PHHY2011JP109549

PATIENT
  Age: 50 Year
  Sex: Female
  Weight: 50 kg

DRUGS (2)
  1. ZOMETA [Suspect]
     Indication: METASTASES TO BONE
     Dosage: 4 MG, PER ADMINISTRATION
     Route: 041
     Dates: start: 20100113, end: 20110928
  2. AROMASIN [Concomitant]
     Route: 048

REACTIONS (3)
  - RENAL TUBULAR NECROSIS [None]
  - RENAL IMPAIRMENT [None]
  - DYSURIA [None]
